FAERS Safety Report 17194816 (Version 1)
Quarter: 2019Q4

REPORT INFORMATION
  Report Type: Spontaneous
  Country: DE (occurrence: DE)
  Receive Date: 20191224
  Receipt Date: 20191224
  Transmission Date: 20200122
  Serious: Yes (Hospitalization)
  Sender: FDA-Public Use
  Company Number: DE-TEVA-2019-DE-1156672

PATIENT
  Age: 57 Year
  Sex: Male

DRUGS (17)
  1. HALOPERIDOL. [Interacting]
     Active Substance: HALOPERIDOL
     Dates: start: 20190208, end: 20190318
  2. CARIPRAZINE [Interacting]
     Active Substance: CARIPRAZINE
     Dates: start: 20190201, end: 20190206
  3. L-THYROXIN [Concomitant]
     Active Substance: LEVOTHYROXINE SODIUM
     Dosage: INTAKE FOR A LONG TIME,75 MCG
  4. CARIPRAZINE [Interacting]
     Active Substance: CARIPRAZINE
  5. ASPIRIN. [Concomitant]
     Active Substance: ASPIRIN
     Dosage: 100 MG?INTAKE FOR SOME TIME
  6. DIAZEPAM. [Concomitant]
     Active Substance: DIAZEPAM
     Dates: start: 20190306, end: 20190318
  7. DIAZEPAM. [Concomitant]
     Active Substance: DIAZEPAM
     Dates: start: 20190319
  8. CARIPRAZINE [Interacting]
     Active Substance: CARIPRAZINE
     Dates: start: 20190214, end: 20190220
  9. DIAZEPAM. [Concomitant]
     Active Substance: DIAZEPAM
     Dates: start: 20190218, end: 20190220
  10. HALOPERIDOL. [Interacting]
     Active Substance: HALOPERIDOL
     Dates: start: 20190118, end: 20190204
  11. DIAZEPAM. [Concomitant]
     Active Substance: DIAZEPAM
     Dosage: 2.5 MG
     Dates: start: 20190221, end: 20190227
  12. PIPAMPERON [Concomitant]
     Active Substance: PIPAMPERONE HYDROCHLORIDE
     Dosage: 40 MG
     Dates: start: 20190204
  13. HALOPERIDOL. [Suspect]
     Active Substance: HALOPERIDOL
     Dosage: 12 MG
     Dates: start: 20190319
  14. HALOPERIDOL. [Interacting]
     Active Substance: HALOPERIDOL
     Dates: start: 20190205, end: 20190207
  15. DIAZEPAM. [Concomitant]
     Active Substance: DIAZEPAM
     Dates: start: 20190304, end: 20190305
  16. DIAZEPAM. [Concomitant]
     Active Substance: DIAZEPAM
     Dates: start: 20190208, end: 20190217
  17. CARIPRAZINE [Interacting]
     Active Substance: CARIPRAZINE
     Dosage: 3 MG
     Dates: start: 20190207, end: 20190213

REACTIONS (2)
  - Hypersexuality [Recovered/Resolved]
  - Drug interaction [Unknown]

NARRATIVE: CASE EVENT DATE: 20190327
